FAERS Safety Report 12300962 (Version 3)
Quarter: 2016Q2

REPORT INFORMATION
  Report Type: Report from Study
  Country: US (occurrence: US)
  Receive Date: 20160425
  Receipt Date: 20160527
  Transmission Date: 20160815
  Serious: Yes (Hospitalization)
  Sender: FDA-Public Use
  Company Number: US-GILEAD-2016-0210373

PATIENT
  Age: 82 Year
  Sex: Female

DRUGS (3)
  1. AMBRISENTAN [Suspect]
     Active Substance: AMBRISENTAN
     Indication: PRODUCT USED FOR UNKNOWN INDICATION
     Dosage: 5 MG, QD
     Route: 065
     Dates: start: 20160328
  2. REVATIO [Concomitant]
     Active Substance: SILDENAFIL CITRATE
  3. ORENITRAM [Concomitant]
     Active Substance: TREPROSTINIL

REACTIONS (5)
  - Dyspnoea exertional [Unknown]
  - Fall [Unknown]
  - Contusion [Unknown]
  - Neck pain [Unknown]
  - Malaise [Unknown]
